FAERS Safety Report 8620419-2 (Version None)
Quarter: 2012Q3

REPORT INFORMATION
  Report Type: 
  Country: None (occurrence: None)
  Receive Date: 20120824
  Receipt Date: 20120814
  Transmission Date: 20120928
  Serious: Yes (Hospitalization)
  Sender: FDA-Public Use
  Company Number: DE-GLAXOSMITHKLINE-B0824782A

PATIENT
  Sex: Female
  Weight: 78 kg

DRUGS (5)
  1. DOXORUBICIN HYDROCHLORIDE [Suspect]
     Indication: BREAST CANCER
     Dosage: 39MG WEEKLY
     Route: 042
     Dates: start: 20120606
  2. DEXAMETHASONE [Concomitant]
     Dates: start: 20120809, end: 20120810
  3. LAPATINIB [Suspect]
     Indication: BREAST CANCER
     Dosage: 750MG PER DAY
     Route: 048
     Dates: start: 20120607
  4. PACLITAXEL [Suspect]
     Indication: BREAST CANCER
     Dosage: 154MG WEEKLY
     Route: 042
     Dates: start: 20120606
  5. FRANOZYTC [Concomitant]
     Dates: start: 20120809, end: 20120810

REACTIONS (1)
  - PNEUMONIA PRIMARY ATYPICAL [None]
